FAERS Safety Report 13746796 (Version 1)
Quarter: 2017Q3

REPORT INFORMATION
  Report Type: Report from Study
  Country: CA (occurrence: CA)
  Receive Date: 20170712
  Receipt Date: 20170712
  Transmission Date: 20171127
  Serious: Yes (Other)
  Sender: FDA-Public Use
  Company Number: CA-ACTELION-A-US2017-156303

PATIENT
  Age: 68 Year
  Sex: Female

DRUGS (12)
  1. ASA [Concomitant]
     Active Substance: ASPIRIN
  2. PREDNISONE. [Concomitant]
     Active Substance: PREDNISONE
  3. ADALAT [Concomitant]
     Active Substance: NIFEDIPINE
  4. FUROSEMIDE. [Concomitant]
     Active Substance: FUROSEMIDE
  5. PROLIA [Concomitant]
     Active Substance: DENOSUMAB
  6. VITAMIN D [Concomitant]
     Active Substance: CHOLECALCIFEROL
  7. HYDROXYCHLOROQUINE [Concomitant]
     Active Substance: HYDROXYCHLOROQUINE
  8. OPSUMIT [Suspect]
     Active Substance: MACITENTAN
     Indication: PULMONARY ARTERIAL HYPERTENSION
     Dosage: 10 MG, QD
     Route: 048
     Dates: start: 20160209
  9. ELTROXIN [Concomitant]
     Active Substance: LEVOTHYROXINE
  10. HCT [Concomitant]
     Active Substance: HYDROCHLOROTHIAZIDE
  11. BISOPROLOL [Concomitant]
     Active Substance: BISOPROLOL
  12. NEXIUM [Concomitant]
     Active Substance: ESOMEPRAZOLE MAGNESIUM

REACTIONS (1)
  - Spinal fracture [Not Recovered/Not Resolved]

NARRATIVE: CASE EVENT DATE: 201705
